FAERS Safety Report 6455132-3 (Version None)
Quarter: 2009Q4

REPORT INFORMATION
  Report Type: 
  Country: None (occurrence: None)
  Receive Date: 20091118
  Receipt Date: 20091105
  Transmission Date: 20100525
  Serious: Yes (Hospitalization)
  Sender: FDA-Public Use
  Company Number: URSO-2009-144

PATIENT
  Age: 47 Year
  Sex: Male

DRUGS (7)
  1. DELURSAN TABLETS 250MG (URSODESOXYCHOLIC ACID) [Suspect]
     Dosage: 250 MG ORAL
     Route: 048
     Dates: start: 20030101
  2. XAGRID (ANAGRELIDE) [Suspect]
     Indication: ESSENTIAL THROMBOCYTHAEMIA
     Dosage: 2 MG (0.5 MG 4 TIMES A DAY) ORAL
     Route: 048
     Dates: start: 20080201
  3. PREVISCAN (FLUINDIONE) [Suspect]
     Indication: ESSENTIAL THROMBOCYTHAEMIA
     Dosage: 15 MG ORAL
     Route: 048
     Dates: start: 20000101
  4. NEXIUM [Suspect]
     Dosage: ORAL
     Route: 048
  5. AVLOCARDYL L.P. PROLONGED RELEASE CAPSULE [Suspect]
     Dosage: 160 MG ORAL
     Route: 048
     Dates: start: 20000101
  6. ACETAMINOPHEN [Suspect]
     Dosage: ORAL
     Route: 048
  7. TARDYFERON (FOLIC ACID) [Suspect]
     Dosage: TWICE A DAY ORAL
     Route: 048
     Dates: start: 20000101

REACTIONS (1)
  - TRANSIENT ISCHAEMIC ATTACK [None]
